FAERS Safety Report 10206503 (Version 6)
Quarter: 2016Q2

REPORT INFORMATION
  Report Type: Spontaneous
  Country: US (occurrence: US)
  Receive Date: 20140530
  Receipt Date: 20160427
  Transmission Date: 20160815
  Serious: Yes (Other)
  Sender: FDA-Public Use
  Company Number: US-GLAXOSMITHKLINE-A0915383A

PATIENT
  Age: 38 Year
  Sex: Female
  Weight: 80 kg

DRUGS (11)
  1. FLOLAN [Suspect]
     Active Substance: EPOPROSTENOL SODIUM
     Dosage: 54 NG/KG/MIN CONTINUOUS
     Dates: start: 20060411
  2. FLOLAN [Suspect]
     Active Substance: EPOPROSTENOL SODIUM
     Indication: PULMONARY ARTERIAL HYPERTENSION
     Dosage: CONTINUOUS26 NG/KG/MIN
     Dates: start: 20060412
  3. FLOLAN [Suspect]
     Active Substance: EPOPROSTENOL SODIUM
     Dosage: UNK
     Dates: start: 20060412
  4. FLOLAN [Suspect]
     Active Substance: EPOPROSTENOL SODIUM
     Dosage: UNK, Z
  5. FLOLAN [Suspect]
     Active Substance: EPOPROSTENOL SODIUM
     Dosage: 55 DF, CO
     Dates: start: 20060411
  6. FLOLAN [Suspect]
     Active Substance: EPOPROSTENOL SODIUM
     Dosage: UNK
     Dates: start: 20060412
  7. ARMOUR [Concomitant]
  8. COUMADIN [Concomitant]
     Active Substance: WARFARIN SODIUM
  9. FLOLAN [Suspect]
     Active Substance: EPOPROSTENOL SODIUM
     Dosage: 49.5 NG/KG/MIN
  10. LETAIRIS [Concomitant]
     Active Substance: AMBRISENTAN
  11. ATIVAN [Concomitant]
     Active Substance: LORAZEPAM

REACTIONS (12)
  - Chest pain [Recovered/Resolved]
  - Erythema [Unknown]
  - Central venous catheterisation [Unknown]
  - Complication associated with device [Unknown]
  - Drug administration error [Unknown]
  - Chest discomfort [Unknown]
  - Malaise [Unknown]
  - Dyspnoea [Unknown]
  - Device leakage [Recovered/Resolved]
  - Incorrect dose administered [Unknown]
  - Thyroid hormones increased [Not Recovered/Not Resolved]
  - Blood iron decreased [Unknown]

NARRATIVE: CASE EVENT DATE: 20130724
